FAERS Safety Report 9753147 (Version 2)
Quarter: 2015Q3

REPORT INFORMATION
  Report Type: Spontaneous
  Country: US (occurrence: US)
  Receive Date: 20131213
  Receipt Date: 20150805
  Transmission Date: 20151125
  Serious: Yes (Hospitalization)
  Sender: FDA-Public Use
  Company Number: US-GILEAD-2010-0026504

PATIENT
  Age: 72 Year
  Sex: Male

DRUGS (15)
  1. CELEBREX [Concomitant]
     Active Substance: CELECOXIB
  2. COLCHICINE. [Concomitant]
     Active Substance: COLCHICINE
  3. LIPITOR [Concomitant]
     Active Substance: ATORVASTATIN CALCIUM
  4. GLIPIZIDE. [Concomitant]
     Active Substance: GLIPIZIDE
  5. MINOXIDIL. [Concomitant]
     Active Substance: MINOXIDIL
  6. METOLAZONE. [Concomitant]
     Active Substance: METOLAZONE
  7. ASPIRIN. [Concomitant]
     Active Substance: ASPIRIN
  8. TEMAZEPAM. [Concomitant]
     Active Substance: TEMAZEPAM
  9. JANUVIA [Concomitant]
     Active Substance: SITAGLIPTIN PHOSPHATE
  10. HYDRALAZINE [Concomitant]
     Active Substance: HYDRALAZINE HYDROCHLORIDE
  11. LEVEMIR [Concomitant]
     Active Substance: INSULIN DETEMIR
  12. FUROSEMIDE. [Concomitant]
     Active Substance: FUROSEMIDE
  13. ATENOLOL. [Concomitant]
     Active Substance: ATENOLOL
  14. POTASSIUM CHLORIDE. [Concomitant]
     Active Substance: POTASSIUM CHLORIDE
  15. LETAIRIS [Suspect]
     Active Substance: AMBRISENTAN
     Indication: PULMONARY ARTERIAL HYPERTENSION
     Route: 048
     Dates: start: 20091208, end: 20091214

REACTIONS (2)
  - Oedema [Recovered/Resolved]
  - Dyspnoea [Recovered/Resolved]

NARRATIVE: CASE EVENT DATE: 20091208
